FAERS Safety Report 6265523-1 (Version None)
Quarter: 2009Q3

REPORT INFORMATION
  Report Type: 
  Country: None (occurrence: None)
  Receive Date: 20090713
  Receipt Date: 20090702
  Transmission Date: 20100115
  Serious: Yes (Hospitalization)
  Sender: FDA-Public Use
  Company Number: CA-PFIZER INC-2009192758

PATIENT
  Age: 74 Year

DRUGS (28)
  1. NAPROXEN [Suspect]
     Indication: SPINAL OSTEOARTHRITIS
     Dosage: UNK
     Route: 048
     Dates: start: 20071123, end: 20090129
  2. BLINDED *NO SUBJECT DRUG [Suspect]
     Indication: SPINAL OSTEOARTHRITIS
     Dosage: UNK
     Route: 048
     Dates: start: 20071123, end: 20090129
  3. BLINDED *PLACEBO [Suspect]
     Indication: SPINAL OSTEOARTHRITIS
     Dosage: UNK
     Route: 048
     Dates: start: 20071123, end: 20090129
  4. BLINDED CELECOXIB [Suspect]
     Indication: SPINAL OSTEOARTHRITIS
     Dosage: UNK
     Route: 048
     Dates: start: 20071123, end: 20090129
  5. IBUPROFEN [Suspect]
     Indication: SPINAL OSTEOARTHRITIS
     Dosage: UNK
     Route: 048
     Dates: start: 20071123, end: 20090129
  6. NAPROXEN [Suspect]
     Dosage: UNK
     Route: 048
     Dates: start: 20071123, end: 20090129
  7. NAPROXEN [Suspect]
     Indication: OSTEOARTHRITIS
  8. BLINDED *NO SUBJECT DRUG [Suspect]
     Indication: OSTEOARTHRITIS
  9. BLINDED *PLACEBO [Suspect]
     Indication: OSTEOARTHRITIS
  10. BLINDED CELECOXIB [Suspect]
     Indication: OSTEOARTHRITIS
  11. IBUPROFEN [Suspect]
     Indication: OSTEOARTHRITIS
  12. NAPROXEN [Suspect]
  13. NAPROXEN [Suspect]
  14. BLINDED *NO SUBJECT DRUG [Suspect]
  15. BLINDED *PLACEBO [Suspect]
  16. BLINDED CELECOXIB [Suspect]
  17. IBUPROFEN [Suspect]
  18. NAPROXEN [Suspect]
  19. NAPROXEN [Suspect]
  20. BLINDED *NO SUBJECT DRUG [Suspect]
  21. BLINDED *PLACEBO [Suspect]
  22. BLINDED CELECOXIB [Suspect]
  23. IBUPROFEN [Suspect]
  24. NAPROXEN [Suspect]
  25. ESOMEPRAZOLE [Concomitant]
     Indication: PROPHYLAXIS
     Dosage: 40 MG, 1X/DAY
     Dates: start: 20071123, end: 20090129
  26. LIPITOR [Concomitant]
     Dosage: 10 MG, 1X/DAY
     Route: 048
     Dates: start: 20040101
  27. ALLOPURINOL [Concomitant]
     Dosage: 300 MG, 1X/DAY
  28. PARIET [Concomitant]
     Dosage: 20 MG, 1X/DAY
     Route: 048
     Dates: start: 20040101

REACTIONS (1)
  - CHOLECYSTITIS ACUTE [None]
